FAERS Safety Report 14795205 (Version 6)
Quarter: 2019Q1

REPORT INFORMATION
  Report Type: Spontaneous
  Country: DE (occurrence: DE)
  Receive Date: 20180423
  Receipt Date: 20190221
  Transmission Date: 20190417
  Serious: Yes (Disabling, Other)
  Sender: FDA-Public Use
  Company Number: DE-009507513-1804DEU009464

PATIENT
  Age: 32 Year
  Sex: Male
  Weight: 92 kg

DRUGS (5)
  1. FINASTERIDE. [Suspect]
     Active Substance: FINASTERIDE
     Indication: ANDROGENETIC ALOPECIA
     Dosage: N98 1X1 DAILY
     Route: 048
     Dates: start: 20120131, end: 20130213
  2. FINASTERIDE. [Suspect]
     Active Substance: FINASTERIDE
     Dosage: 1 MG, QD
     Route: 048
     Dates: end: 20150113
  3. PROPECIA [Suspect]
     Active Substance: FINASTERIDE
     Indication: ALOPECIA
     Dosage: 1 MG, QD
     Route: 048
     Dates: start: 20150113, end: 20150223
  4. FINASTERIDE. [Suspect]
     Active Substance: FINASTERIDE
     Dosage: UNK
     Dates: start: 201406, end: 20141001
  5. PROPECIA [Suspect]
     Active Substance: FINASTERIDE
     Indication: ANDROGENETIC ALOPECIA
     Dosage: HALF DOSE OF 1 MG TABLET (0.5 MG DAILY)
     Route: 048
     Dates: start: 20150223, end: 201511

REACTIONS (40)
  - Suicidal ideation [Unknown]
  - Mood swings [Unknown]
  - Listless [Unknown]
  - Sleep disorder [Not Recovered/Not Resolved]
  - Hypospermia [Not Recovered/Not Resolved]
  - Bladder neck obstruction [Unknown]
  - Sexual dysfunction [Unknown]
  - Panic attack [Unknown]
  - Memory impairment [Unknown]
  - Anhedonia [Unknown]
  - Dyspepsia [Unknown]
  - Hyperhidrosis [Unknown]
  - Hypohidrosis [Unknown]
  - Reproductive tract hypoplasia, male [Unknown]
  - Peripheral coldness [Unknown]
  - Prostatic pain [Unknown]
  - Anxiety [Not Recovered/Not Resolved]
  - Adjustment disorder [Unknown]
  - Penis disorder [Unknown]
  - Fatigue [Unknown]
  - Pollakiuria [Unknown]
  - Incorrect dosage administered [Unknown]
  - Depression [Not Recovered/Not Resolved]
  - Anorgasmia [Unknown]
  - Penile pain [Unknown]
  - Penile size reduced [Unknown]
  - Prostatic disorder [Unknown]
  - Apathy [Unknown]
  - Urinary incontinence [Unknown]
  - Erectile dysfunction [Not Recovered/Not Resolved]
  - Testicular pain [Unknown]
  - Pain [Unknown]
  - Abdominal pain [Unknown]
  - Loss of libido [Unknown]
  - Semen volume decreased [Recovering/Resolving]
  - Semen viscosity decreased [Recovering/Resolving]
  - Scrotal disorder [Unknown]
  - Cognitive disorder [Unknown]
  - Infertility male [Not Recovered/Not Resolved]
  - Blood testosterone decreased [Unknown]

NARRATIVE: CASE EVENT DATE: 201501
